FAERS Safety Report 26105486 (Version 1)
Quarter: 2025Q4

REPORT INFORMATION
  Report Type: Spontaneous
  Country: EU (occurrence: EU)
  Receive Date: 20251201
  Receipt Date: 20251201
  Transmission Date: 20260118
  Serious: Yes (Hospitalization, Other)
  Sender: AUROBINDO
  Company Number: EU-AFSSAPS-DJ2025001628

PATIENT
  Age: 63 Year
  Sex: Female

DRUGS (12)
  1. PREDNISONE [Suspect]
     Active Substance: PREDNISONE
     Indication: Diffuse large B-cell lymphoma
     Dosage: UNK (1 CYCLE OF CHOP, 4 CYCLES OF R-ACVBP)
     Route: 065
     Dates: start: 20210219, end: 20210429
  2. DOXORUBICIN [Suspect]
     Active Substance: DOXORUBICIN
     Indication: Diffuse large B-cell lymphoma
     Dosage: UNK (1 CYCLE OF CHOP)
     Dates: start: 20210219, end: 20210429
  3. METHOTREXATE [Suspect]
     Active Substance: METHOTREXATE
     Indication: Diffuse large B-cell lymphoma
     Dosage: UNK (2 ADMINISTRATIONS)
     Route: 065
     Dates: start: 20210517, end: 20210531
  4. ETOPOSIDE [Suspect]
     Active Substance: ETOPOSIDE
     Indication: Diffuse large B-cell lymphoma
     Dosage: UNK (4 CYCLES OF R-HOLOXAN)
     Dates: start: 20210615, end: 20210810
  5. BLEOMYCIN [Suspect]
     Active Substance: BLEOMYCIN SULFATE
     Indication: Diffuse large B-cell lymphoma
     Dosage: UNK (4 CYCLES OF R-ACVBP)
     Route: 065
     Dates: start: 20210219, end: 20210429
  6. CYCLOPHOSPHAMIDE [Suspect]
     Active Substance: CYCLOPHOSPHAMIDE
     Indication: Diffuse large B-cell lymphoma
     Dosage: UNK (1 CYCLE OF CHOP, 4 CYCLES OF R-ACVBP)
     Route: 065
  7. IFOSFAMIDE [Suspect]
     Active Substance: IFOSFAMIDE
     Indication: Diffuse large B-cell lymphoma
     Dosage: UNK (4 CYCLES OF R-HOLOXAN)
     Dates: start: 20210615, end: 20210810
  8. VINCRISTINE [Suspect]
     Active Substance: VINCRISTINE
     Indication: Diffuse large B-cell lymphoma
     Dosage: UNK (1 CYCLE OF CHOP)
     Route: 065
  9. RITUXIMAB [Suspect]
     Active Substance: RITUXIMAB
     Indication: Diffuse large B-cell lymphoma
     Dosage: UNK (4 CYCLES OF R-HOLOXAN)
     Route: 065
     Dates: start: 20210615, end: 20210810
  10. VINDESINE [Suspect]
     Active Substance: VINDESINE
     Indication: Diffuse large B-cell lymphoma
     Dosage: UNK (4 CYCLES OF R-ACVBP)
     Route: 065
     Dates: start: 20210219, end: 20210429
  11. ETOPOSIDE [Concomitant]
     Active Substance: ETOPOSIDE
     Indication: Diffuse large B-cell lymphoma
     Dosage: UNK
     Dates: start: 20210615, end: 20210810
  12. IFOSFAMIDE [Concomitant]
     Active Substance: IFOSFAMIDE
     Indication: Diffuse large B-cell lymphoma
     Dosage: UNK
     Dates: start: 20210615, end: 20210810

REACTIONS (1)
  - Dilated cardiomyopathy [Not Recovered/Not Resolved]

NARRATIVE: CASE EVENT DATE: 20250701
